FAERS Safety Report 23992536 (Version 2)
Quarter: 2024Q2

REPORT INFORMATION
  Report Type: Spontaneous
  Country: US (occurrence: US)
  Receive Date: 20240620
  Receipt Date: 20240626
  Transmission Date: 20240716
  Serious: Yes (Other)
  Sender: FDA-Public Use
  Company Number: US-SUN PHARMACEUTICAL INDUSTRIES LTD-2024R1-452026

PATIENT
  Age: 24 Month
  Sex: Female

DRUGS (3)
  1. METHOTREXATE [Suspect]
     Active Substance: METHOTREXATE
     Indication: Acute myeloid leukaemia
     Dosage: UNK, WEEKLY
     Route: 065
  2. DASATINIB [Suspect]
     Active Substance: DASATINIB
     Indication: Acute myeloid leukaemia
     Dosage: UNK (MAXIMIZED)
     Route: 048
  3. PEGASPARGASE [Concomitant]
     Active Substance: PEGASPARGASE
     Indication: Acute myeloid leukaemia
     Dosage: UNK, BIMONTHLY
     Route: 065

REACTIONS (1)
  - Neoplasm progression [Unknown]
